FAERS Safety Report 14239290 (Version 2)
Quarter: 2018Q3

REPORT INFORMATION
  Report Type: Report from Study
  Country: US (occurrence: US)
  Receive Date: 20171130
  Receipt Date: 20180921
  Transmission Date: 20181010
  Serious: No
  Sender: FDA-Public Use
  Company Number: US-SA-2017SA229243

PATIENT
  Age: 60 Year
  Sex: Female
  Weight: 113 kg

DRUGS (14)
  1. ATIVAN [Concomitant]
     Active Substance: LORAZEPAM
     Indication: ANXIETY
     Dosage: 65 MG,BID
     Route: 065
     Dates: start: 200608
  2. TOPROL XL [Concomitant]
     Active Substance: METOPROLOL SUCCINATE
     Indication: HYPERTENSION
     Dosage: 100 MG,BID
     Route: 065
     Dates: start: 200303
  3. SARILUMAB [Suspect]
     Active Substance: SARILUMAB
     Indication: RHEUMATOID ARTHRITIS
     Dosage: 200 MG,QOW
     Route: 058
     Dates: start: 20170926, end: 20180102
  4. SARILUMAB [Suspect]
     Active Substance: SARILUMAB
     Dosage: 200 UNK
     Route: 058
  5. VOLTAREN [DICLOFENAC] [Concomitant]
     Active Substance: DICLOFENAC SODIUM
     Indication: OSTEOARTHRITIS
     Dosage: 50 MG,UNK
     Route: 065
  6. CENTRUM SILVER [ASCORBIC ACID;BETACAROTENE;BIOTIN;CALCIUM;CHROMIUM;COL [Concomitant]
     Dosage: UNK UNK,UNK
     Route: 065
  7. SARILUMAB [Suspect]
     Active Substance: SARILUMAB
     Dosage: 200 MG,QOW
     Route: 058
     Dates: start: 20180206
  8. OMEPRAZOLE. [Concomitant]
     Active Substance: OMEPRAZOLE
     Indication: GASTROOESOPHAGEAL REFLUX DISEASE
     Dosage: 40 MG,UNK
     Route: 065
     Dates: start: 201611
  9. LIPITOR [Concomitant]
     Active Substance: ATORVASTATIN CALCIUM
     Indication: BLOOD CHOLESTEROL
     Dosage: 10 MG,QD
     Route: 065
  10. SARILUMAB [Suspect]
     Active Substance: SARILUMAB
     Dosage: 200 MG,QOW
     Route: 058
     Dates: start: 20180129
  11. SARILUMAB [Suspect]
     Active Substance: SARILUMAB
     Dosage: 200 MG,QOW
     Route: 058
     Dates: start: 20170926, end: 20180102
  12. PROZAC [Concomitant]
     Active Substance: FLUOXETINE HYDROCHLORIDE
     Indication: DEPRESSION
     Dosage: UNK UNK,UNK
     Route: 065
     Dates: start: 200608
  13. CALCIUM CITRATE [Concomitant]
     Active Substance: CALCIUM CITRATE
     Dosage: UNK UNK,QD
     Route: 065
  14. VITAMIN D3 [Concomitant]
     Active Substance: CHOLECALCIFEROL
     Dosage: 1000 IU,QD
     Route: 065

REACTIONS (16)
  - Injection site reaction [Not Recovered/Not Resolved]
  - Injection site dryness [Not Recovered/Not Resolved]
  - Sinus disorder [Recovered/Resolved]
  - Cough [Not Recovered/Not Resolved]
  - Upper respiratory tract infection [Unknown]
  - Bronchitis [Recovered/Resolved]
  - Myalgia [Unknown]
  - Condition aggravated [Unknown]
  - Injection site pruritus [Not Recovered/Not Resolved]
  - Skin exfoliation [Not Recovered/Not Resolved]
  - Injection site mass [Not Recovered/Not Resolved]
  - Injection site erythema [Not Recovered/Not Resolved]
  - Drug dose omission [Unknown]
  - Dysphonia [Not Recovered/Not Resolved]
  - Fall [Unknown]
  - Nasopharyngitis [Recovered/Resolved]

NARRATIVE: CASE EVENT DATE: 2017
